FAERS Safety Report 25069322 (Version 1)
Quarter: 2025Q1

REPORT INFORMATION
  Report Type: Spontaneous
  Country: US (occurrence: US)
  Receive Date: 20250312
  Receipt Date: 20250312
  Transmission Date: 20250408
  Serious: No
  Sender: BRISTOL-MYERS SQUIBB COMPANY
  Company Number: US-BRISTOL-MYERS SQUIBB COMPANY-2025-035964

PATIENT
  Age: 74 Year
  Sex: Male
  Weight: 63.96 kg

DRUGS (39)
  1. REVLIMID [Suspect]
     Active Substance: LENALIDOMIDE
     Indication: Plasma cell myeloma
     Dosage: 1X21 DAYS
     Route: 048
     Dates: start: 20240311
  2. REVLIMID [Suspect]
     Active Substance: LENALIDOMIDE
     Dosage: 21 CT
     Route: 048
     Dates: start: 20250303
  3. REVLIMID [Suspect]
     Active Substance: LENALIDOMIDE
     Dosage: 21 CT
     Route: 048
     Dates: start: 20231106
  4. REVLIMID [Suspect]
     Active Substance: LENALIDOMIDE
     Dosage: 21 CT
     Route: 048
     Dates: start: 20231127
  5. REVLIMID [Suspect]
     Active Substance: LENALIDOMIDE
     Dosage: 21 CT
     Route: 048
     Dates: start: 20231219
  6. REVLIMID [Suspect]
     Active Substance: LENALIDOMIDE
     Dosage: 21 CT
     Route: 048
     Dates: start: 20250204
  7. REVLIMID [Suspect]
     Active Substance: LENALIDOMIDE
     Dosage: 21 CT
     Route: 048
     Dates: start: 20250112
  8. REVLIMID [Suspect]
     Active Substance: LENALIDOMIDE
     Dosage: 21 CT
     Route: 048
     Dates: start: 20241208
  9. REVLIMID [Suspect]
     Active Substance: LENALIDOMIDE
     Dosage: 21 CT
     Route: 048
     Dates: start: 20241114
  10. REVLIMID [Suspect]
     Active Substance: LENALIDOMIDE
     Dosage: 21 CT
     Route: 048
     Dates: start: 20241002
  11. REVLIMID [Suspect]
     Active Substance: LENALIDOMIDE
     Dosage: 21 CT
     Route: 048
     Dates: start: 20240911
  12. REVLIMID [Suspect]
     Active Substance: LENALIDOMIDE
     Dosage: 21 CT
     Route: 048
     Dates: start: 20240815
  13. EVENITY [Concomitant]
     Active Substance: ROMOSOZUMAB-AQQG
     Indication: Product used for unknown indication
     Dates: start: 20250113
  14. BREZTRI [Concomitant]
     Active Substance: BUDESONIDE\FORMOTEROL\GLYCOPYRROLATE
     Indication: Product used for unknown indication
     Dates: start: 20241115
  15. FUROSEMIDE [Concomitant]
     Active Substance: FUROSEMIDE
     Indication: Product used for unknown indication
     Dates: start: 20240917
  16. PROLENSA [Concomitant]
     Active Substance: BROMFENAC SODIUM
     Indication: Product used for unknown indication
     Dates: start: 20220825
  17. MOXIFLOXACIN [Concomitant]
     Active Substance: MOXIFLOXACIN
     Indication: Product used for unknown indication
     Dates: start: 20220825
  18. LOTEMAX [Concomitant]
     Active Substance: LOTEPREDNOL ETABONATE
     Indication: Product used for unknown indication
     Dates: start: 20220825
  19. MONTELUKAST SODIUM [Concomitant]
     Active Substance: MONTELUKAST SODIUM
     Indication: Product used for unknown indication
     Dates: start: 20220210
  20. MUCINEX D [Concomitant]
     Active Substance: GUAIFENESIN\PSEUDOEPHEDRINE HYDROCHLORIDE
     Indication: Product used for unknown indication
     Dates: start: 20220120
  21. ELIQUIS [Concomitant]
     Active Substance: APIXABAN
     Indication: Product used for unknown indication
     Route: 048
     Dates: start: 20211207
  22. AMLODIPINE BESYLATE [Concomitant]
     Active Substance: AMLODIPINE BESYLATE
     Indication: Product used for unknown indication
     Dates: start: 20211029
  23. PREDNISONE [Concomitant]
     Active Substance: PREDNISONE
     Indication: Product used for unknown indication
     Dates: start: 20210406
  24. DEXAMETHASONE [Concomitant]
     Active Substance: DEXAMETHASONE
     Indication: Product used for unknown indication
     Route: 048
     Dates: start: 20210406
  25. PROCHLORPERAZINE MALEATE [Concomitant]
     Active Substance: PROCHLORPERAZINE MALEATE
     Indication: Product used for unknown indication
     Dates: start: 20210406
  26. ONDANSETRON HYDROCHLORIDE [Concomitant]
     Active Substance: ONDANSETRON HYDROCHLORIDE
     Indication: Product used for unknown indication
     Dates: start: 20210406
  27. VALACYCLOVIR HYDROCHLORIDE [Concomitant]
     Active Substance: VALACYCLOVIR HYDROCHLORIDE
     Indication: Product used for unknown indication
     Dates: start: 20210406
  28. ALBUTEROL\IPRATROPIUM [Concomitant]
     Active Substance: ALBUTEROL\IPRATROPIUM
     Indication: Product used for unknown indication
     Dates: start: 20210406
  29. OXYCODONE HYDROCHLORIDE [Concomitant]
     Active Substance: OXYCODONE HYDROCHLORIDE
     Indication: Product used for unknown indication
     Dates: start: 20210406
  30. MIRTAZAPINE [Concomitant]
     Active Substance: MIRTAZAPINE
     Indication: Product used for unknown indication
     Dates: start: 20210406
  31. POLYETHYLENE GLYCOL 3350 [Concomitant]
     Active Substance: POLYETHYLENE GLYCOL 3350
     Indication: Product used for unknown indication
     Dates: start: 20210406
  32. TRAMADOL HCL [Concomitant]
     Active Substance: TRAMADOL HYDROCHLORIDE
     Indication: Product used for unknown indication
     Dates: start: 20210406
  33. METOPROLOL TARTRATE [Concomitant]
     Active Substance: METOPROLOL TARTRATE
     Indication: Product used for unknown indication
     Dates: start: 20210406
  34. LENALIDOMIDE [Concomitant]
     Active Substance: LENALIDOMIDE
     Indication: Product used for unknown indication
     Route: 048
     Dates: start: 20240711
  35. LENALIDOMIDE [Concomitant]
     Active Substance: LENALIDOMIDE
     Route: 048
     Dates: start: 20240613
  36. LENALIDOMIDE [Concomitant]
     Active Substance: LENALIDOMIDE
     Route: 048
     Dates: start: 20240529
  37. LENALIDOMIDE [Concomitant]
     Active Substance: LENALIDOMIDE
     Route: 048
     Dates: start: 20240422
  38. LENALIDOMIDE [Concomitant]
     Active Substance: LENALIDOMIDE
     Route: 048
     Dates: start: 20240328
  39. LENALIDOMIDE [Concomitant]
     Active Substance: LENALIDOMIDE
     Route: 048
     Dates: start: 20240227

REACTIONS (1)
  - Extra dose administered [Unknown]

NARRATIVE: CASE EVENT DATE: 20250305
